FAERS Safety Report 7319466-2 (Version None)
Quarter: 2011Q1

REPORT INFORMATION
  Report Type: 
  Country: None (occurrence: None)
  Receive Date: 20110228
  Receipt Date: 20100405
  Transmission Date: 20110831
  Serious: No
  Sender: FDA-Public Use
  Company Number: A0853579A

PATIENT

DRUGS (1)
  1. LAMICTAL [Suspect]
     Route: 048

REACTIONS (1)
  - AMNESIA [None]
